FAERS Safety Report 23506203 (Version 1)
Quarter: 2024Q1

REPORT INFORMATION
  Report Type: Other
  Country: None (occurrence: IR)
  Receive Date: 20240209
  Receipt Date: 20240209
  Transmission Date: 20240410
  Serious: No
  Sender: FDA-Public Use
  Company Number: IR-GREER Laboratories, Inc.-2152882

PATIENT
  Age: 9 Year
  Sex: Male

DRUGS (1)
  1. ALTERNARIA ALTERNATA [Suspect]
     Active Substance: ALTERNARIA ALTERNATA
     Indication: Dermatitis atopic
     Route: 058

REACTIONS (2)
  - Dermatitis atopic [Unknown]
  - Dermatitis atopic [Unknown]
